FAERS Safety Report 17614468 (Version 3)
Quarter: 2020Q2

REPORT INFORMATION
  Report Type: Report from Study
  Country: US (occurrence: US)
  Receive Date: 20200402
  Receipt Date: 20200429
  Transmission Date: 20200713
  Serious: No
  Sender: FDA-Public Use
  Company Number: NVSC2020US084363

PATIENT
  Sex: Male

DRUGS (2)
  1. TREPROSTINIL. [Suspect]
     Active Substance: TREPROSTINIL
     Indication: PULMONARY ARTERIAL HYPERTENSION
     Dosage: 20 NG/KG/MIN
     Route: 042
     Dates: start: 20200319
  2. TREPROSTINIL. [Suspect]
     Active Substance: TREPROSTINIL
     Dosage: 14 NG/KG/MIN
     Route: 042

REACTIONS (6)
  - Renal function test abnormal [Unknown]
  - Diarrhoea [Unknown]
  - Vascular resistance systemic decreased [Unknown]
  - Swelling [Unknown]
  - Oedema [Unknown]
  - Liver disorder [Unknown]
